FAERS Safety Report 6716538-8 (Version None)
Quarter: 2010Q2

REPORT INFORMATION
  Report Type: 
  Country: None (occurrence: None)
  Receive Date: 20100507
  Receipt Date: 20100426
  Transmission Date: 20101027
  Serious: No
  Sender: FDA-Public Use
  Company Number: US-ELI_LILLY_AND_COMPANY-US201003007770

PATIENT
  Age: 55 Year
  Sex: Male
  Weight: 102.4 kg

DRUGS (7)
  1. CYMBALTA [Suspect]
     Indication: DEPRESSION
     Dosage: 60 MG, DAILY (1/D)
     Dates: end: 20080201
  2. CYMBALTA [Suspect]
     Dosage: 30 MG, 2/D
     Dates: start: 20080201, end: 20100402
  3. BISOPROLOL [Concomitant]
     Indication: HYPERTENSION
  4. LIPITOR [Concomitant]
     Indication: BLOOD CHOLESTEROL INCREASED
  5. PREVACID [Concomitant]
     Indication: GASTROOESOPHAGEAL REFLUX DISEASE
  6. LYRICA [Concomitant]
     Indication: CERVICOBRACHIAL SYNDROME
  7. ACETAMINOPHEN [Concomitant]

REACTIONS (3)
  - HEPATIC ENZYME INCREASED [None]
  - PAIN IN EXTREMITY [None]
  - SJOGREN'S SYNDROME [None]
